FAERS Safety Report 12113448 (Version 1)
Quarter: 2016Q1

REPORT INFORMATION
  Report Type: Spontaneous
  Country: US (occurrence: None)
  Receive Date: 20160224
  Receipt Date: 20160224
  Transmission Date: 20160526
  Serious: Yes (Death)
  Sender: FDA-Public Use
  Company Number: None

PATIENT
  Age: 66 Year
  Sex: Male
  Weight: 104.7 kg

DRUGS (4)
  1. SODIUM BICARBONATE. [Suspect]
     Active Substance: SODIUM BICARBONATE
     Indication: ACUTE KIDNEY INJURY
     Route: 042
     Dates: start: 20150313, end: 20150316
  2. AMINO ACIDS/DEXTROSE/ELECTROLYTES [Suspect]
     Active Substance: AMINO ACIDS\DEXTROSE\ELECTROLYTES NOS
     Indication: NUTRITIONAL CONDITION ABNORMAL
     Route: 042
     Dates: start: 20150313, end: 20150317
  3. SODIUM BICARBONATE. [Suspect]
     Active Substance: SODIUM BICARBONATE
     Indication: PRODUCT USED FOR UNKNOWN INDICATION
     Route: 042
     Dates: start: 20150313, end: 20150316
  4. SODIUM BICARBONATE. [Suspect]
     Active Substance: SODIUM BICARBONATE
     Indication: METABOLIC ACIDOSIS
     Route: 042
     Dates: start: 20150313, end: 20150316

REACTIONS (6)
  - Acute kidney injury [None]
  - Metabolic acidosis [None]
  - Sudden cardiac death [None]
  - Pulseless electrical activity [None]
  - Respiratory depression [None]
  - Palpitations [None]

NARRATIVE: CASE EVENT DATE: 20150317
